FAERS Safety Report 7689922-6 (Version None)
Quarter: 2011Q3

REPORT INFORMATION
  Report Type: 
  Country: None (occurrence: None)
  Receive Date: 20110818
  Receipt Date: 20110809
  Transmission Date: 20111222
  Serious: No
  Sender: FDA-Public Use
  Company Number: US-BIOGENIDEC-2011BI029745

PATIENT
  Sex: Female

DRUGS (1)
  1. TYSABRI [Suspect]
     Indication: MULTIPLE SCLEROSIS
     Route: 042
     Dates: start: 20070718

REACTIONS (9)
  - IMMUNE SYSTEM DISORDER [None]
  - ASTHENIA [None]
  - MALAISE [None]
  - FEELING HOT [None]
  - DECREASED IMMUNE RESPONSIVENESS [None]
  - MULTIPLE SCLEROSIS RELAPSE [None]
  - GAIT DISTURBANCE [None]
  - FATIGUE [None]
  - INSOMNIA [None]
